FAERS Safety Report 7094039-8 (Version None)
Quarter: 2010Q4

REPORT INFORMATION
  Report Type: 
  Country: None (occurrence: None)
  Receive Date: 20101101
  Receipt Date: 20101014
  Transmission Date: 20110411
  Serious: No
  Sender: FDA-Public Use
  Company Number: TCI2010A03818

PATIENT
  Age: 50 Year
  Sex: Female

DRUGS (1)
  1. ROZEREM [Suspect]
     Indication: INSOMNIA
     Dosage: 8 MG (8 MG, 1 IN 1 D) PER ORAL
     Route: 048
     Dates: start: 20100822, end: 20100822

REACTIONS (3)
  - EAR DISCOMFORT [None]
  - EAR PAIN [None]
  - PALPITATIONS [None]
